FAERS Safety Report 24294258 (Version 1)
Quarter: 2024Q3

REPORT INFORMATION
  Report Type: Spontaneous
  Country: US (occurrence: US)
  Receive Date: 20240906
  Receipt Date: 20240906
  Transmission Date: 20241016
  Serious: No
  Sender: DOMPE FARMACEUTICI
  Company Number: US-FARMAPROD-202406-2313

PATIENT
  Age: 85 Year
  Sex: Female

DRUGS (12)
  1. OXERVATE [Suspect]
     Active Substance: CENEGERMIN-BKBJ
     Indication: Neurotrophic keratopathy
     Route: 047
     Dates: start: 20240605
  2. OXERVATE [Suspect]
     Active Substance: CENEGERMIN-BKBJ
  3. TIMOLOL MALEATE [Concomitant]
     Active Substance: TIMOLOL MALEATE
  4. TAFLUPROST [Concomitant]
     Active Substance: TAFLUPROST
  5. SIMVASTATIN [Concomitant]
     Active Substance: SIMVASTATIN
  6. OFLOXACIN [Concomitant]
     Active Substance: OFLOXACIN
  7. CALCIUM CARBONATE [Concomitant]
     Active Substance: CALCIUM CARBONATE
     Dosage: 500 (1250)
  8. CALCIUM CARBONATE\CHOLECALCIFEROL [Concomitant]
     Active Substance: CALCIUM CARBONATE\CHOLECALCIFEROL
  9. ALENDRONATE SODIUM [Concomitant]
     Active Substance: ALENDRONATE SODIUM
  10. VYZULTA [Concomitant]
     Active Substance: LATANOPROSTENE BUNOD
  11. ZIRGAN [Concomitant]
     Active Substance: GANCICLOVIR
  12. D3-5000 [Concomitant]

REACTIONS (2)
  - Eye pain [Not Recovered/Not Resolved]
  - Visual impairment [Unknown]

NARRATIVE: CASE EVENT DATE: 20240616
